FAERS Safety Report 14751268 (Version 2)
Quarter: 2018Q3

REPORT INFORMATION
  Report Type: Report from Study
  Country: MX (occurrence: MX)
  Receive Date: 20180412
  Receipt Date: 20180830
  Transmission Date: 20181010
  Serious: Yes (Hospitalization)
  Sender: FDA-Public Use
  Company Number: MX-EMD SERONO-E2B_90037341

PATIENT
  Age: 11 Year
  Sex: Male

DRUGS (1)
  1. SAIZEN [Suspect]
     Active Substance: SOMATROPIN
     Indication: GROWTH HORMONE DEFICIENCY
     Route: 058
     Dates: start: 20170911

REACTIONS (1)
  - Tonsillar disorder [Recovered/Resolved]

NARRATIVE: CASE EVENT DATE: 201803
